FAERS Safety Report 20369432 (Version 1)
Quarter: 2022Q1

REPORT INFORMATION
  Report Type: Spontaneous
  Country: NL (occurrence: NL)
  Receive Date: 20220124
  Receipt Date: 20220124
  Transmission Date: 20220424
  Serious: Yes (Hospitalization)
  Sender: FDA-Public Use
  Company Number: None

PATIENT
  Age: 62 Year
  Sex: Female
  Weight: 62 kg

DRUGS (5)
  1. AMIODARONE [Suspect]
     Active Substance: AMIODARONE
     Indication: Product used for unknown indication
     Dosage: THERAPY END DATE: ASKU; AMIODARON HYDROCHLORIDE / BRAND NAME NOT SPECIFIED
     Dates: start: 201910
  2. SPIRONOLACTONE [Concomitant]
     Active Substance: SPIRONOLACTONE
     Dosage: THERAPY START AND END DATE: ASKU; SPIRONOLACTON / BRAND NAME NOT SPECIFIED
  3. AMBRISENTAN [Concomitant]
     Active Substance: AMBRISENTAN
     Dosage: THERAPY START AND END DATE: ASKU; AMBRISENTAN TABLET 5MG / BRAND NAME NOT SPECIFIED
  4. XARELTO [Concomitant]
     Active Substance: RIVAROXABAN
     Dosage: THERAPY START AND END DATE: ASKU; RIVAROXABAN TABLET 10MG / XARELTO TABLET FILM COATED 10MG
  5. BUMETANIDE [Concomitant]
     Active Substance: BUMETANIDE
     Dosage: THERAPY START AND END DATE: ASKU; BUMETANIDE / BRAND NAME NOT SPECIFIED

REACTIONS (2)
  - Corneal opacity [Unknown]
  - Constipation [Not Recovered/Not Resolved]

NARRATIVE: CASE EVENT DATE: 20190101
